FAERS Safety Report 16757016 (Version 18)
Quarter: 2020Q1

REPORT INFORMATION
  Report Type: Report from Study
  Country: MY (occurrence: MY)
  Receive Date: 20190829
  Receipt Date: 20200214
  Transmission Date: 20200409
  Serious: Yes (Life-Threatening, Hospitalization)
  Sender: FDA-Public Use
  Company Number: MY-EISAI MEDICAL RESEARCH-EC-2019-061404

PATIENT
  Age: 73 Year
  Sex: Male
  Weight: 66.4 kg

DRUGS (11)
  1. LENVATINIB [Suspect]
     Active Substance: LENVATINIB
     Indication: NON-SMALL CELL LUNG CANCER METASTATIC
     Route: 048
     Dates: start: 20190722
  2. PEMBROLIZUMAB. [Suspect]
     Active Substance: PEMBROLIZUMAB
     Route: 041
     Dates: start: 20190814, end: 20190814
  3. BISOPROLOL [Concomitant]
     Active Substance: BISOPROLOL
     Dates: start: 201401
  4. SODIUM CHLORIDE. [Concomitant]
     Active Substance: SODIUM CHLORIDE
     Dates: start: 20190822, end: 20190822
  5. CETRIZINE [Concomitant]
     Active Substance: CETIRIZINE HYDROCHLORIDE
     Dates: start: 20190805, end: 20190901
  6. NORVASC [Concomitant]
     Active Substance: AMLODIPINE BESYLATE
     Dates: start: 201401, end: 20190812
  7. TICLOPIDINE [Concomitant]
     Active Substance: TICLOPIDINE
     Dates: start: 199901
  8. TIOTROPIUM BROMIDE [Concomitant]
     Active Substance: TIOTROPIUM BROMIDE
     Dates: start: 20190829
  9. PEMBROLIZUMAB. [Suspect]
     Active Substance: PEMBROLIZUMAB
     Route: 041
     Dates: start: 20190903
  10. PEMBROLIZUMAB. [Suspect]
     Active Substance: PEMBROLIZUMAB
     Indication: NON-SMALL CELL LUNG CANCER METASTATIC
     Route: 041
     Dates: start: 20190722, end: 20190722
  11. LOSARTAN POTASSIUM. [Concomitant]
     Active Substance: LOSARTAN POTASSIUM
     Dates: start: 20190814, end: 20190910

REACTIONS (1)
  - Accelerated hypertension [Recovered/Resolved]

NARRATIVE: CASE EVENT DATE: 20190822
